FAERS Safety Report 21854173 (Version 1)
Quarter: 2023Q1

REPORT INFORMATION
  Report Type: Spontaneous
  Country: US (occurrence: None)
  Receive Date: 20230111
  Receipt Date: 20230111
  Transmission Date: 20230417
  Serious: No
  Sender: FDA-Public Use
  Company Number: None

PATIENT
  Sex: Female
  Weight: 66.22 kg

DRUGS (11)
  1. IBRANCE [Suspect]
     Active Substance: PALBOCICLIB
     Indication: Breast cancer female
     Dosage: FREQUENCY : DAILY;?
     Route: 048
  2. ADVAIR 100 DISKUS [Concomitant]
  3. ALBUTEROL [Concomitant]
  4. ASPIR-LOW [Concomitant]
  5. ATORVASTATIN [Concomitant]
     Active Substance: ATORVASTATIN
  6. CALCIUM\VITAMIN D [Concomitant]
     Active Substance: CALCIUM\VITAMIN D
  7. FLONASE ALLERGY RELIEF [Concomitant]
  8. LORATADINE [Concomitant]
  9. MUCINEX ALLERGY [Concomitant]
  10. MULTIVITAMIN [Concomitant]
  11. TYLENOL [Concomitant]

REACTIONS (2)
  - Drug ineffective [None]
  - Disease progression [None]
